FAERS Safety Report 9683618 (Version 2)
Quarter: 2013Q4

REPORT INFORMATION
  Report Type: Spontaneous
  Country: US (occurrence: US)
  Receive Date: 20131112
  Receipt Date: 20131219
  Transmission Date: 20140711
  Serious: Yes (Hospitalization, Other)
  Sender: FDA-Public Use
  Company Number: US-PFIZER INC-2013320136

PATIENT
  Age: 67 Year
  Sex: Female
  Weight: 48.07 kg

DRUGS (5)
  1. DILANTIN-125 [Suspect]
     Indication: CONVULSION
     Dosage: 125 MG, UNK
     Dates: start: 1974
  2. MAGNESIUM CITRATE [Suspect]
     Dosage: UNK
  3. MYSOLINE [Concomitant]
     Dosage: UNK
  4. VALIUM [Concomitant]
     Dosage: UNK
  5. SYNTHROID [Concomitant]
     Indication: POSTOPERATIVE CARE
     Dosage: UNK

REACTIONS (8)
  - Constipation [Unknown]
  - Intestinal obstruction [Unknown]
  - Renal haemorrhage [Unknown]
  - Hypotension [Unknown]
  - Malaise [Unknown]
  - Feeling abnormal [Unknown]
  - Local swelling [Unknown]
  - Depression [Unknown]
